FAERS Safety Report 6315415-4 (Version None)
Quarter: 2009Q3

REPORT INFORMATION
  Report Type: 
  Country: None (occurrence: None)
  Receive Date: 20090819
  Receipt Date: 20090814
  Transmission Date: 20100115
  Serious: Yes (Death)
  Sender: FDA-Public Use
  Company Number: JP-CELGENEUS-087-50794-09080811

PATIENT
  Sex: Male

DRUGS (12)
  1. VIDAZA [Suspect]
     Indication: MYELODYSPLASTIC SYNDROME
     Route: 051
     Dates: start: 20090525, end: 20090531
  2. VIDAZA [Suspect]
     Route: 058
     Dates: start: 20090708, end: 20090714
  3. FULCALIQ 2 [Concomitant]
     Indication: FLUID REPLACEMENT
     Route: 041
     Dates: start: 20090724, end: 20090810
  4. FULCALIQ 2 [Concomitant]
     Indication: NUTRITIONAL SUPPORT
  5. ELEMENMIC [Concomitant]
     Indication: MINERAL SUPPLEMENTATION
     Route: 041
     Dates: start: 20090724, end: 20090810
  6. INTRALIPID 10% [Concomitant]
     Indication: SUPPLEMENTATION THERAPY
     Route: 041
     Dates: start: 20090725, end: 20090810
  7. HUMULIN R [Concomitant]
     Indication: BLOOD GLUCOSE
     Route: 041
     Dates: start: 20090725, end: 20090810
  8. SLOW-K [Concomitant]
     Indication: BLOOD POTASSIUM ABNORMAL
     Route: 048
     Dates: start: 20090707, end: 20090809
  9. CALONAL [Concomitant]
     Indication: PYREXIA
     Dosage: 400-1600 MG
     Route: 048
     Dates: start: 20090712, end: 20090810
  10. NITRODERM [Concomitant]
     Indication: CHEST PAIN
     Dates: start: 20090712, end: 20090810
  11. KCL CORRECTIVE [Concomitant]
     Indication: BLOOD POTASSIUM ABNORMAL
     Route: 041
     Dates: start: 20090724, end: 20090810
  12. CHLOR-TRIMETON [Concomitant]
     Indication: ALLERGY PROPHYLAXIS
     Route: 051
     Dates: start: 20090717, end: 20090810

REACTIONS (1)
  - GASTROINTESTINAL INFECTION [None]
